FAERS Safety Report 9326750 (Version 1)
Quarter: 2013Q2

REPORT INFORMATION
  Report Type: Spontaneous
  Country: US (occurrence: US)
  Receive Date: 20130604
  Receipt Date: 20130604
  Transmission Date: 20140414
  Serious: No
  Sender: FDA-Public Use
  Company Number: US-AMGEN-USASP2013031624

PATIENT
  Age: 38 Year
  Sex: Female

DRUGS (11)
  1. ENBREL [Suspect]
     Indication: CONNECTIVE TISSUE DISORDER
     Dosage: 50 MG, QWK
     Route: 058
     Dates: start: 201302
  2. ENBREL [Suspect]
     Indication: RHEUMATOID ARTHRITIS
  3. LISINOPRIL [Concomitant]
     Dosage: UNK
  4. ALBUTEROL                          /00139501/ [Concomitant]
     Dosage: UNK
  5. ZYRTEC [Concomitant]
     Dosage: UNK
  6. RANITIDINE [Concomitant]
     Dosage: UNK
  7. FLUTICASONE [Concomitant]
     Dosage: UNK
  8. LIDOCAINE                          /00033402/ [Concomitant]
     Dosage: UNK
     Route: 062
  9. MOMETASONE [Concomitant]
     Dosage: UNK
  10. OMEPRAZOLE [Concomitant]
     Dosage: UNK
  11. FOLIC ACID [Concomitant]
     Dosage: UNK

REACTIONS (1)
  - Herpes zoster [Unknown]
